FAERS Safety Report 25955622 (Version 4)
Quarter: 2025Q4

REPORT INFORMATION
  Report Type: Report from Study
  Country: CA (occurrence: CA)
  Receive Date: 20251024
  Receipt Date: 20251219
  Transmission Date: 20260117
  Serious: Yes (Hospitalization, Other)
  Sender: CELLTRION
  Company Number: CA-CELLTRION INC.-2025CA035217

PATIENT

DRUGS (2)
  1. INFLIXIMAB-DYYB [Suspect]
     Active Substance: INFLIXIMAB-DYYB
     Indication: Colitis ulcerative
     Dosage: 770 MG, EVERY 8 WEEKS (MAINTENANCE)/770 MG - IV (INTRAVENOUS) EVERY 8 WEEKS- NEW REQUEST
     Route: 042
     Dates: start: 20250904
  2. INFLIXIMAB-DYYB [Suspect]
     Active Substance: INFLIXIMAB-DYYB
     Dosage: 770 MG, EVERY 8 WEEKS (MAINTENANCE)/770 MG - IV (INTRAVENOUS) EVERY 8 WEEKS- NEW REQUEST
     Route: 042
     Dates: start: 20250904

REACTIONS (9)
  - Loss of consciousness [Recovered/Resolved]
  - Blood potassium decreased [Recovered/Resolved]
  - Blood magnesium decreased [Recovered/Resolved]
  - Hypotension [Recovered/Resolved]
  - Colitis ulcerative [Unknown]
  - Arthritis [Unknown]
  - Weight decreased [Unknown]
  - Overdose [Unknown]
  - Intentional product use issue [Unknown]

NARRATIVE: CASE EVENT DATE: 20250101
